FAERS Safety Report 6644540-3 (Version None)
Quarter: 2010Q1

REPORT INFORMATION
  Report Type: 
  Country: None (occurrence: None)
  Receive Date: 20100319
  Receipt Date: 20100319
  Transmission Date: 20100710
  Serious: Yes (Other)
  Sender: FDA-Public Use
  Company Number: None

PATIENT
  Sex: Female

DRUGS (7)
  1. LEVAQUIN [Suspect]
     Indication: SKIN INFECTION
     Dosage: LEVAQUIN 750MG 1 TAB QD ORALLY
     Route: 048
     Dates: start: 20100308, end: 20100311
  2. LEVOTHYROXINE SODIUM [Concomitant]
  3. CRESTOR [Concomitant]
  4. CEPHALEXIN [Concomitant]
  5. LISINOPRIL [Concomitant]
  6. AUGMENTIN [Concomitant]
  7. DIFLUCAN [Concomitant]

REACTIONS (2)
  - PHOTOSENSITIVITY REACTION [None]
  - TENDONITIS [None]
